FAERS Safety Report 9102167 (Version 2)
Quarter: 2013Q3

REPORT INFORMATION
  Report Type: Spontaneous
  Country: US (occurrence: US)
  Receive Date: 20130218
  Receipt Date: 20130716
  Transmission Date: 20140515
  Serious: No
  Sender: FDA-Public Use
  Company Number: US-BIOGENIDEC-2013BI012276

PATIENT
  Age: 34 Year
  Sex: Female

DRUGS (1)
  1. TYSABRI [Suspect]
     Indication: MULTIPLE SCLEROSIS
     Route: 042
     Dates: start: 20110621

REACTIONS (10)
  - Pain [Unknown]
  - Hypersomnia [Unknown]
  - General symptom [Unknown]
  - Feeling abnormal [Unknown]
  - Adverse event [Unknown]
  - Memory impairment [Unknown]
  - Balance disorder [Recovered/Resolved]
  - Emotional disorder [Unknown]
  - Headache [Unknown]
  - Multiple sclerosis [Unknown]
